FAERS Safety Report 20709289 (Version 3)
Quarter: 2023Q4

REPORT INFORMATION
  Report Type: Report from Study
  Country: US (occurrence: US)
  Receive Date: 20220414
  Receipt Date: 20231219
  Transmission Date: 20240110
  Serious: Yes (Hospitalization, Other)
  Sender: FDA-Public Use
  Company Number: US-TAKEDA-US201927064

PATIENT
  Sex: Female

DRUGS (3)
  1. HUMAN IMMUNOGLOBULIN G [Suspect]
     Active Substance: HUMAN IMMUNOGLOBULIN G
     Indication: Primary immunodeficiency syndrome
     Dosage: UNK
     Route: 042
  2. HUMAN IMMUNOGLOBULIN G [Suspect]
     Active Substance: HUMAN IMMUNOGLOBULIN G
     Dosage: 50 MILLIGRAM
     Route: 042
  3. HUMAN IMMUNOGLOBULIN G [Suspect]
     Active Substance: HUMAN IMMUNOGLOBULIN G
     Dosage: 40 MILLIGRAM
     Route: 042

REACTIONS (10)
  - Spinal cord abscess [Unknown]
  - Post procedural haemorrhage [Unknown]
  - Weight increased [Recovering/Resolving]
  - Blood immunoglobulin M increased [Unknown]
  - Meningism [Unknown]
  - Blood immunoglobulin M decreased [Unknown]
  - Brucella test positive [Unknown]
  - Arthralgia [Recovering/Resolving]
  - Influenza like illness [Unknown]
  - White blood cell count decreased [Unknown]
